FAERS Safety Report 6716016-6 (Version None)
Quarter: 2010Q2

REPORT INFORMATION
  Report Type: 
  Country: None (occurrence: None)
  Receive Date: 20100507
  Receipt Date: 20100114
  Transmission Date: 20101027
  Serious: Yes (Other)
  Sender: FDA-Public Use
  Company Number: A0857981A

PATIENT

DRUGS (1)
  1. NICOTINE [Suspect]
     Route: 062

REACTIONS (3)
  - DRUG INEFFECTIVE [None]
  - HOMICIDAL IDEATION [None]
  - SUICIDAL IDEATION [None]
